FAERS Safety Report 8219923-0 (Version None)
Quarter: 2012Q1

REPORT INFORMATION
  Report Type: 
  Country: None (occurrence: None)
  Receive Date: 20120319
  Receipt Date: 20120308
  Transmission Date: 20120608
  Serious: Yes (Other)
  Sender: FDA-Public Use
  Company Number: DE-ASTRAZENECA-2012SE16528

PATIENT
  Age: 60 Year
  Sex: Female

DRUGS (1)
  1. MEROPENEM [Suspect]
     Indication: PYREXIA
     Route: 042

REACTIONS (2)
  - DEPRESSED LEVEL OF CONSCIOUSNESS [None]
  - HYPERNATRAEMIA [None]
